FAERS Safety Report 7942877-9 (Version None)
Quarter: 2011Q4

REPORT INFORMATION
  Report Type: 
  Country: None (occurrence: None)
  Receive Date: 20111128
  Receipt Date: 20111121
  Transmission Date: 20120403
  Serious: Yes (Other)
  Sender: FDA-Public Use
  Company Number: US-MERCK-1111USA02922

PATIENT
  Age: 60 Year
  Sex: Male

DRUGS (7)
  1. ZOCOR [Suspect]
     Indication: HYPERLIPIDAEMIA
     Route: 048
     Dates: start: 20010101
  2. COREG CR [Concomitant]
     Route: 065
  3. NIASPAN [Concomitant]
     Route: 065
  4. UBIDECARENONE [Concomitant]
     Route: 065
  5. PLAVIX [Concomitant]
     Route: 065
  6. VITAMINS (UNSPECIFIED) [Concomitant]
     Route: 065
  7. ASPIRIN [Concomitant]
     Route: 065

REACTIONS (2)
  - ADVERSE EVENT [None]
  - MYALGIA [None]
